FAERS Safety Report 7664498-8 (Version None)
Quarter: 2011Q3

REPORT INFORMATION
  Report Type: 
  Country: None (occurrence: None)
  Receive Date: 20110806
  Receipt Date: 20110221
  Transmission Date: 20111222
  Serious: No
  Sender: FDA-Public Use
  Company Number: US-ABBOTT-11P-163-0706563-00

PATIENT
  Sex: Male
  Weight: 93.07 kg

DRUGS (11)
  1. METFORMIN HCL [Concomitant]
     Indication: PRODUCT USED FOR UNKNOWN INDICATION
  2. TECTERNA [Concomitant]
     Indication: PRODUCT USED FOR UNKNOWN INDICATION
  3. NIASPAN [Suspect]
     Indication: HIGH DENSITY LIPOPROTEIN DECREASED
     Dates: start: 20110218
  4. DIAZEPAM [Concomitant]
     Indication: PRODUCT USED FOR UNKNOWN INDICATION
  5. FEXOFENIDINE [Concomitant]
     Indication: PRODUCT USED FOR UNKNOWN INDICATION
  6. ONGOYZA [Concomitant]
     Indication: PRODUCT USED FOR UNKNOWN INDICATION
  7. CARBEDILOL [Concomitant]
     Indication: PRODUCT USED FOR UNKNOWN INDICATION
  8. PLAVIX [Concomitant]
     Indication: PRODUCT USED FOR UNKNOWN INDICATION
  9. LIPITOR [Concomitant]
     Indication: PRODUCT USED FOR UNKNOWN INDICATION
  10. ASPIRIN [Concomitant]
     Indication: PRODUCT USED FOR UNKNOWN INDICATION
  11. FAMOTIDINE [Concomitant]
     Indication: PRODUCT USED FOR UNKNOWN INDICATION

REACTIONS (6)
  - PARAESTHESIA [None]
  - NAUSEA [None]
  - FEELING HOT [None]
  - DECREASED APPETITE [None]
  - BLOOD GLUCOSE INCREASED [None]
  - MUSCULAR WEAKNESS [None]
